FAERS Safety Report 6758089-0 (Version None)
Quarter: 2010Q2

REPORT INFORMATION
  Report Type: 
  Country: None (occurrence: None)
  Receive Date: 20100524
  Receipt Date: 20100325
  Transmission Date: 20101027
  Serious: No
  Sender: FDA-Public Use
  Company Number: 007742

PATIENT
  Sex: Male
  Weight: 114.76 kg

DRUGS (2)
  1. CIMZIA [Suspect]
     Indication: CROHN'S DISEASE
     Dosage: (SUBCUTANEOUS) ; (200 MG 1X/W WEEKS SUBCUTANEOUS)
     Route: 058
     Dates: start: 20090130, end: 20090301
  2. CIMZIA [Suspect]
     Indication: CROHN'S DISEASE
     Dosage: (SUBCUTANEOUS) ; (200 MG 1X/W WEEKS SUBCUTANEOUS)
     Route: 058
     Dates: start: 20090301

REACTIONS (5)
  - PAIN [None]
  - RECURRING SKIN BOILS [None]
  - TOOTHACHE [None]
  - URINARY TRACT INFECTION [None]
  - WHEEZING [None]
